FAERS Safety Report 8352910-0 (Version None)
Quarter: 2012Q2

REPORT INFORMATION
  Report Type: 
  Country: None (occurrence: None)
  Receive Date: 20120511
  Receipt Date: 20120507
  Transmission Date: 20120825
  Serious: Yes (Death, Hospitalization, Other)
  Sender: FDA-Public Use
  Company Number: ES-ASTRAZENECA-2012SE29465

PATIENT
  Age: 76 Year
  Sex: Male

DRUGS (2)
  1. SEROQUEL [Suspect]
     Indication: DEMENTIA ALZHEIMER'S TYPE
     Route: 048
     Dates: start: 20100601, end: 20100706
  2. TRAZODONE HCL [Interacting]
     Indication: DEMENTIA ALZHEIMER'S TYPE
     Route: 048
     Dates: start: 20100601, end: 20100706

REACTIONS (5)
  - SOMNOLENCE [None]
  - ARRHYTHMIA [None]
  - RESPIRATORY DISORDER [None]
  - DRUG INTERACTION [None]
  - DEPRESSED LEVEL OF CONSCIOUSNESS [None]
